FAERS Safety Report 11205519 (Version 1)
Quarter: 2015Q2

REPORT INFORMATION
  Report Type: Spontaneous
  Country: IT (occurrence: None)
  Receive Date: 20150617
  Receipt Date: 20150617
  Transmission Date: 20150821
  Serious: Yes (Death)
  Sender: FDA-Public Use
  Company Number: NL01PV15_39106

PATIENT
  Age: 35 Year
  Sex: Female
  Weight: 162 kg

DRUGS (7)
  1. ZOLPIDEM [Suspect]
     Active Substance: ZOLPIDEM\ZOLPIDEM TARTRATE
  2. ZOPICLONE [Suspect]
     Active Substance: ZOPICLONE
  3. LAMOTRIGINE (LAMOTRIGINE) [Suspect]
     Active Substance: LAMOTRIGINE
  4. MODAFINIL (MODAFINIL) [Suspect]
     Active Substance: MODAFINIL
  5. TRAMADOL (TRAMADOL) [Suspect]
     Active Substance: TRAMADOL
  6. PREGABALIN (PREGABALIN) [Suspect]
     Active Substance: PREGABALIN
  7. DESVENLAFAXINE. [Suspect]
     Active Substance: DESVENLAFAXINE

REACTIONS (9)
  - Contusion [None]
  - Toxicity to various agents [None]
  - Hypersensitivity vasculitis [None]
  - Swelling face [None]
  - Completed suicide [None]
  - Skin abrasion [None]
  - Erythema [None]
  - Dry skin [None]
  - Haemorrhage subcutaneous [None]
